FAERS Safety Report 7402013-4 (Version None)
Quarter: 2011Q2

REPORT INFORMATION
  Report Type: 
  Country: None (occurrence: None)
  Receive Date: 20110408
  Receipt Date: 20110330
  Transmission Date: 20111010
  Serious: Yes (Other)
  Sender: FDA-Public Use
  Company Number: ES-PFIZER INC-2011070656

PATIENT
  Age: 69 Year
  Sex: Female

DRUGS (1)
  1. LYRICA [Suspect]
     Indication: NEURALGIA
     Dosage: 225 MG DAILY
     Dates: start: 20110101

REACTIONS (4)
  - NASAL CONGESTION [None]
  - DRY MOUTH [None]
  - HERPES ZOSTER [None]
  - DYSPNOEA [None]
